FAERS Safety Report 4524402-8 (Version None)
Quarter: 2004Q4

REPORT INFORMATION
  Report Type: 
  Country: None (occurrence: None)
  Receive Date: 20041123
  Receipt Date: 20040819
  Transmission Date: 20050328
  Serious: Yes (Hospitalization)
  Sender: FDA-Public Use
  Company Number: US-JNJFOC-20040806779

PATIENT
  Age: 15 Year
  Sex: Female

DRUGS (3)
  1. PROPULSID [Suspect]
     Indication: GASTROOESOPHAGEAL REFLUX DISEASE
     Dosage: 2 OR 3 TIMES DAILY   ORAL
     Route: 048
     Dates: start: 19980101, end: 20010101
  2. PRILOSEC [Concomitant]
  3. PREVACID [Concomitant]

REACTIONS (2)
  - HEART RATE IRREGULAR [None]
  - LOSS OF CONSCIOUSNESS [None]
